FAERS Safety Report 8908385 (Version 1)
Quarter: 2012Q4

REPORT INFORMATION
  Report Type: 
  Country: US (occurrence: US)
  Receive Date: 20121114
  Receipt Date: 20121114
  Transmission Date: 20130627
  Serious: No
  Sender: FDA-Public Use
  Company Number: US-009507513-2012SP021285

PATIENT
  Sex: Female
  Weight: 79.82 kg

DRUGS (3)
  1. CLARITIN-D 12 HOUR [Suspect]
     Indication: SEASONAL ALLERGY
     Dosage: 5 mg, BID
     Route: 048
     Dates: start: 20120224, end: 20120312
  2. CLARITIN-D 12 HOUR [Suspect]
     Indication: HOUSE DUST ALLERGY
  3. CLARITIN-D 12 HOUR [Suspect]
     Indication: MEDICAL OBSERVATION

REACTIONS (1)
  - No therapeutic response [Unknown]
